FAERS Safety Report 11777393 (Version 1)
Quarter: 2015Q4

REPORT INFORMATION
  Report Type: Spontaneous
  Country: US (occurrence: None)
  Receive Date: 20151124
  Receipt Date: 20151124
  Transmission Date: 20160304
  Serious: No
  Sender: FDA-Public Use
  Company Number: None

PATIENT
  Age: 45 Year
  Sex: Female
  Weight: 57.15 kg

DRUGS (1)
  1. EZOGABINE [Suspect]
     Active Substance: EZOGABINE
     Route: 048
     Dates: start: 20150825, end: 20151007

REACTIONS (1)
  - Neutropenia [None]

NARRATIVE: CASE EVENT DATE: 20151027
